FAERS Safety Report 7805084-6 (Version None)
Quarter: 2011Q4

REPORT INFORMATION
  Report Type: 
  Country: None (occurrence: None)
  Receive Date: 20111010
  Receipt Date: 20110929
  Transmission Date: 20120403
  Serious: Yes (Death)
  Sender: FDA-Public Use
  Company Number: JP-BAXTER-2011BH030808

PATIENT
  Age: 86 Year
  Sex: Female
  Weight: 38 kg

DRUGS (5)
  1. FEIBA [Suspect]
     Indication: ACQUIRED HAEMOPHILIA
     Route: 042
     Dates: start: 20110107, end: 20110109
  2. FEIBA [Suspect]
     Indication: HAEMOSTASIS
     Route: 042
     Dates: start: 20110107, end: 20110109
  3. FEIBA [Suspect]
     Route: 042
     Dates: start: 20110112, end: 20110114
  4. FEIBA [Suspect]
     Route: 042
     Dates: start: 20110112, end: 20110114
  5. PREDNISOLONE [Suspect]
     Indication: IMMUNOSUPPRESSION
     Route: 048

REACTIONS (1)
  - PNEUMONIA [None]
